FAERS Safety Report 13402862 (Version 1)
Quarter: 2017Q2

REPORT INFORMATION
  Report Type: Spontaneous
  Country: US (occurrence: US)
  Receive Date: 20170404
  Receipt Date: 20170404
  Transmission Date: 20170830
  Serious: No
  Sender: FDA-Public Use
  Company Number: US-ROCHE-1726642

PATIENT

DRUGS (2)
  1. EYLEA [Concomitant]
     Active Substance: AFLIBERCEPT
  2. AVASTIN [Suspect]
     Active Substance: BEVACIZUMAB
     Indication: RETINAL VEIN OCCLUSION
     Route: 050
     Dates: start: 201304, end: 201510

REACTIONS (2)
  - Angiogram retina abnormal [Unknown]
  - Visual impairment [Unknown]
